FAERS Safety Report 17595967 (Version 1)
Quarter: 2020Q1

REPORT INFORMATION
  Report Type: Spontaneous
  Country: NL (occurrence: NL)
  Receive Date: 20200329
  Receipt Date: 20200329
  Transmission Date: 20200409
  Serious: Yes (Other)
  Sender: FDA-Public Use
  Company Number: NL-AMGEN-NLDSP2020049319

PATIENT
  Age: 49 Year
  Sex: Male
  Weight: 94 kg

DRUGS (3)
  1. NAPROXEN. [Concomitant]
     Active Substance: NAPROXEN
     Dosage: 500 MG (MILLIGRAM), UNK
  2. ENBREL [Suspect]
     Active Substance: ETANERCEPT
     Indication: PRODUCT USED FOR UNKNOWN INDICATION
     Dosage: 50 MG, EVERY 3 DAY (INJECTION LIQUID, 50 MG / ML (MILLIGRAMS PER MILLILITER), 2 X PER WEEK, 50 MG.)
     Route: 058
     Dates: end: 20180222
  3. ENBREL [Suspect]
     Active Substance: ETANERCEPT
     Dosage: 50 MG, WEEKLY (1 X PER WEEK 50 MG. AT A TIME. SUBCUTANEOUS)
     Route: 058
     Dates: start: 201703

REACTIONS (2)
  - White matter lesion [Recovering/Resolving]
  - Optic neuritis [Recovering/Resolving]

NARRATIVE: CASE EVENT DATE: 2018
